FAERS Safety Report 23896189 (Version 2)
Quarter: 2024Q3

REPORT INFORMATION
  Report Type: Spontaneous
  Country: TR (occurrence: TR)
  Receive Date: 20240524
  Receipt Date: 20240701
  Transmission Date: 20241017
  Serious: No
  Sender: PFIZER
  Company Number: TR-PFIZER INC-PV202400061033

PATIENT
  Age: 8 Year
  Sex: Female
  Weight: 30 kg

DRUGS (2)
  1. NGENLA [Suspect]
     Active Substance: SOMATROGON-GHLA
     Indication: Growth hormone deficiency
     Dosage: 20 MG, WEEKLY
     Route: 058
     Dates: start: 20240404, end: 20240511
  2. RABIES VACCIN [Concomitant]
     Dosage: UNK

REACTIONS (4)
  - Injection site hypersensitivity [Recovered/Resolved]
  - Injection site pain [Recovered/Resolved]
  - Injection site erythema [Recovered/Resolved]
  - Injection site swelling [Recovered/Resolved]

NARRATIVE: CASE EVENT DATE: 20240401
